FAERS Safety Report 7466557-1 (Version None)
Quarter: 2011Q2

REPORT INFORMATION
  Report Type: 
  Country: None (occurrence: None)
  Receive Date: 20110509
  Receipt Date: 20110429
  Transmission Date: 20111010
  Serious: Yes (Hospitalization, Other)
  Sender: FDA-Public Use
  Company Number: BR-ASTRAZENECA-2011SE25152

PATIENT
  Age: 86 Year
  Sex: Female
  Weight: 83 kg

DRUGS (14)
  1. SEROQUEL [Suspect]
     Indication: INSOMNIA
     Route: 048
     Dates: start: 20101201
  2. SEROQUEL [Suspect]
     Route: 048
     Dates: start: 20110101
  3. SOMALGIN CARDIO [Concomitant]
     Indication: HYPERTENSION
     Route: 048
     Dates: start: 20030101
  4. CRESTOR [Suspect]
     Route: 048
     Dates: start: 20090101
  5. SEROQUEL [Suspect]
     Indication: SEDATION
     Route: 048
     Dates: start: 20101201
  6. SEROQUEL [Suspect]
     Route: 048
     Dates: start: 20101201, end: 20110101
  7. PURAN T4 [Concomitant]
     Route: 048
     Dates: start: 19990101
  8. PANTOPRAZOLE [Concomitant]
     Indication: METAPLASIA
     Route: 048
     Dates: start: 20000101
  9. ALLOPURINOL [Concomitant]
     Indication: HYPERURICAEMIA
     Route: 048
     Dates: start: 20050101
  10. SEROQUEL [Suspect]
     Route: 048
     Dates: start: 20101201, end: 20110101
  11. PULMICORT [Suspect]
     Indication: APNOEA
     Dosage: 0.25 MG/ML
     Route: 055
     Dates: start: 20101001
  12. SEROQUEL [Suspect]
     Route: 048
     Dates: start: 20110101
  13. PANTOPRAZOLE [Concomitant]
     Indication: GASTRITIS
     Route: 048
     Dates: start: 20000101
  14. ATACAND [Suspect]
     Indication: HYPERTENSION
     Route: 048
     Dates: start: 20101201

REACTIONS (13)
  - INSOMNIA [None]
  - HYPERGLYCAEMIA [None]
  - DEPRESSION [None]
  - GALLBLADDER CANCER [None]
  - URINARY TRACT INFECTION [None]
  - IRON DEFICIENCY [None]
  - APNOEA [None]
  - OFF LABEL USE [None]
  - PULMONARY FIBROSIS [None]
  - LOWER RESPIRATORY TRACT INFECTION [None]
  - OXYGEN SATURATION DECREASED [None]
  - HYPOVITAMINOSIS [None]
  - BLOOD PRESSURE INADEQUATELY CONTROLLED [None]
